FAERS Safety Report 6024545-6 (Version None)
Quarter: 2008Q4

REPORT INFORMATION
  Report Type: 
  Country: None (occurrence: None)
  Receive Date: 20081231
  Receipt Date: 20081120
  Transmission Date: 20090506
  Serious: No
  Sender: FDA-Public Use
  Company Number: US-BRISTOL-MYERS SQUIBB COMPANY-14370225

PATIENT
  Age: 59 Year
  Sex: Female
  Weight: 92 kg

DRUGS (6)
  1. ORENCIA [Suspect]
     Indication: RHEUMATOID ARTHRITIS
     Dosage: INTERRUPTED IN MAY2008 AND STARTED AGAIN;(21OCT08)3RD TREATMENT
     Route: 042
     Dates: start: 20060501
  2. LASIX [Concomitant]
  3. DIOVAN [Concomitant]
  4. PREDNISONE [Concomitant]
  5. MULTI-VITAMIN [Concomitant]
  6. LEXAPRO [Concomitant]

REACTIONS (2)
  - DRUG INEFFECTIVE [None]
  - RHEUMATOID ARTHRITIS [None]
